FAERS Safety Report 8814264 (Version 1)
Quarter: 2012Q4

REPORT INFORMATION
  Report Type: 
  Country: DE (occurrence: None)
  Receive Date: 20120925
  Receipt Date: 20120925
  Transmission Date: 20130627
  Serious: Yes (Congenital Anomaly, Other)
  Sender: FDA-Public Use
  Company Number: AUR-APL-2012-04106

PATIENT
  Age: 0 Year
  Sex: Male
  Weight: 2.89 kg

DRUGS (4)
  1. LEVETIRACETAM [Suspect]
     Indication: EPILEPSY
     Dates: start: 20110518, end: 20120204
  2. LEVETIRACETAM [Suspect]
     Indication: EPILEPSY
     Route: 064
  3. FOLIC ACID [Concomitant]
  4. ERYTHROMYCIN [Concomitant]

REACTIONS (5)
  - Foetal exposure during pregnancy [None]
  - Plagiocephaly [None]
  - Dysmorphism [None]
  - Hemivertebra [None]
  - Scoliosis [None]
